FAERS Safety Report 8987583 (Version 1)
Quarter: 2012Q4

REPORT INFORMATION
  Report Type: 
  Country: IT (occurrence: IT)
  Receive Date: 20121227
  Receipt Date: 20121227
  Transmission Date: 20130627
  Serious: Yes (Other)
  Sender: FDA-Public Use
  Company Number: IT-PFIZER INC-2012329840

PATIENT
  Age: 34 Year
  Sex: Male

DRUGS (1)
  1. PANTORC [Suspect]
     Indication: GASTRITIS
     Dosage: 20 mg, daily
     Route: 048
     Dates: start: 20121007, end: 20121014

REACTIONS (1)
  - Dermatitis bullous [Recovered/Resolved]
